FAERS Safety Report 7521505-0 (Version None)
Quarter: 2011Q2

REPORT INFORMATION
  Report Type: 
  Country: None (occurrence: None)
  Receive Date: 20110603
  Receipt Date: 20101201
  Transmission Date: 20111010
  Serious: Yes (Disabling, Other)
  Sender: FDA-Public Use
  Company Number: TW-BAYER-201044692GPV

PATIENT
  Age: 26 Year
  Sex: Female

DRUGS (1)
  1. BETAFERON [Suspect]
     Indication: MULTIPLE SCLEROSIS
     Route: 058
     Dates: start: 20041227

REACTIONS (4)
  - INJECTION SITE REACTION [None]
  - PALPITATIONS [None]
  - BLINDNESS [None]
  - HEADACHE [None]
